FAERS Safety Report 20003817 (Version 1)
Quarter: 2021Q4

REPORT INFORMATION
  Report Type: Spontaneous
  Country: AT (occurrence: AT)
  Receive Date: 20211027
  Receipt Date: 20211027
  Transmission Date: 20220303
  Serious: Yes (Other)
  Sender: FDA-Public Use
  Company Number: AT-002147023-NVSC2021AT193260

PATIENT
  Sex: Female

DRUGS (6)
  1. METHOTREXATE SODIUM [Suspect]
     Active Substance: METHOTREXATE SODIUM
     Indication: Chemotherapy
     Dosage: 5 MG, TWICE A WEEK
     Dates: start: 20210208, end: 20210308
  2. CAPECITABINE [Suspect]
     Active Substance: CAPECITABINE
     Indication: Chemotherapy
     Dosage: 1500 MG, (1-0-2) DAILY
     Dates: start: 20201122, end: 20201126
  3. CYCLOPHOSPHAMIDE [Suspect]
     Active Substance: CYCLOPHOSPHAMIDE
     Indication: Chemotherapy
     Dosage: 50 MG, ONCE A DAY (1-0-0)
     Dates: start: 20210208, end: 20210727
  4. FULVESTRANT [Suspect]
     Active Substance: FULVESTRANT
     Dosage: 250 MG, 2 TIMES IN MONTH
     Dates: start: 20191115, end: 20201122
  5. LETROZOLE [Concomitant]
     Active Substance: LETROZOLE
     Dosage: UNK
  6. PALBOCICLIB [Concomitant]
     Active Substance: PALBOCICLIB
     Dosage: UNK

REACTIONS (3)
  - Cardiotoxicity [Unknown]
  - Haematotoxicity [Unknown]
  - Neoplasm progression [Unknown]
